FAERS Safety Report 19613951 (Version 1)
Quarter: 2021Q3

REPORT INFORMATION
  Report Type: Spontaneous
  Country: US (occurrence: US)
  Receive Date: 20210726
  Receipt Date: 20210726
  Transmission Date: 20211014
  Serious: No
  Sender: FDA-Public Use
  Company Number: None

PATIENT
  Age: 80 Year
  Sex: Male
  Weight: 106 kg

DRUGS (1)
  1. MELOXICAM (MELOXICAM 15MG TAB) [Suspect]
     Active Substance: MELOXICAM
     Indication: PAIN
     Route: 048
     Dates: start: 20200410, end: 20210531

REACTIONS (5)
  - Gastric ulcer [None]
  - Melaena [None]
  - Haematemesis [None]
  - Barrett^s oesophagus [None]
  - Haemodynamic instability [None]

NARRATIVE: CASE EVENT DATE: 20210531
